FAERS Safety Report 7802399-2 (Version None)
Quarter: 2011Q4

REPORT INFORMATION
  Report Type: 
  Country: None (occurrence: None)
  Receive Date: 20111007
  Receipt Date: 20111004
  Transmission Date: 20120403
  Serious: Yes (Death)
  Sender: FDA-Public Use
  Company Number: US-AMGEN-USASP2011049436

PATIENT
  Sex: Male

DRUGS (3)
  1. IMMUNOGLOBULINS [Concomitant]
     Indication: IDIOPATHIC THROMBOCYTOPENIC PURPURA
     Route: 042
  2. NPLATE [Suspect]
     Indication: IDIOPATHIC THROMBOCYTOPENIC PURPURA
     Dosage: 69 MUG, ONE TIME DOSE
     Dates: start: 20110623, end: 20110623
  3. DANAZOL [Concomitant]
     Indication: IDIOPATHIC THROMBOCYTOPENIC PURPURA

REACTIONS (2)
  - PHARYNGOESOPHAGEAL DIVERTICULUM [None]
  - MULTIMORBIDITY [None]
